FAERS Safety Report 4650787-8 (Version None)
Quarter: 2005Q2

REPORT INFORMATION
  Report Type: 
  Country: None (occurrence: None)
  Receive Date: 20050503
  Receipt Date: 20050429
  Transmission Date: 20051028
  Serious: Yes (Hospitalization)
  Sender: FDA-Public Use
  Company Number: 146

PATIENT
  Age: 50 Year
  Sex: Female

DRUGS (8)
  1. MELPHALAN [Suspect]
     Indication: MULTIPLE MYELOMA
     Route: 042
     Dates: start: 20040922
  2. THALIDOMIDE [Suspect]
     Indication: MULTIPLE MYELOMA
     Route: 048
     Dates: start: 20040126
  3. DEXAMETHASONE [Suspect]
     Route: 042
     Dates: start: 20040920, end: 20040923
  4. ACYCLOVIR [Concomitant]
  5. PROTONIX [Concomitant]
  6. ATIVAN [Concomitant]
  7. ZOLOFT [Concomitant]
  8. TEQUIN [Concomitant]

REACTIONS (1)
  - DEEP VEIN THROMBOSIS [None]
